FAERS Safety Report 25947743 (Version 2)
Quarter: 2025Q4

REPORT INFORMATION
  Report Type: Spontaneous
  Country: JP (occurrence: JP)
  Receive Date: 20251022
  Receipt Date: 20251127
  Transmission Date: 20260117
  Serious: Yes (Other)
  Sender: AMGEN
  Company Number: JP-AMGEN-JPNSP2025205938

PATIENT

DRUGS (2)
  1. MVASI [Suspect]
     Active Substance: BEVACIZUMAB-AWWB
     Indication: Rectal cancer
     Dosage: UNK (INTRAVENOUS DRIP INFUSION)
     Route: 040
  2. CAPOX [Concomitant]
     Indication: Rectal cancer
     Dosage: UNK

REACTIONS (3)
  - Rectal cancer recurrent [Unknown]
  - Abdominal abscess [Unknown]
  - Procedural failure [Unknown]
